FAERS Safety Report 9578608 (Version 1)
Quarter: 2013Q4

REPORT INFORMATION
  Report Type: Spontaneous
  Country: US (occurrence: US)
  Receive Date: 20131001
  Receipt Date: 20131001
  Transmission Date: 20140711
  Serious: No
  Sender: FDA-Public Use
  Company Number: US-AMGEN-USASP2013014105

PATIENT
  Age: 29 Year
  Sex: Male
  Weight: 97.51 kg

DRUGS (9)
  1. ENBREL [Suspect]
     Indication: PRODUCT USED FOR UNKNOWN INDICATION
     Dosage: 50 MG, QWK
     Route: 058
  2. LEUCOVORIN                         /00566701/ [Concomitant]
     Dosage: 350 MG, UNK
  3. METHOTREXATE [Concomitant]
     Dosage: 2.5 MG, UNK
  4. ADDERALL [Concomitant]
     Dosage: 5 MG, UNK
  5. NEURONTIN [Concomitant]
     Dosage: 100 MG, UNK
  6. OXYCONTIN [Concomitant]
     Dosage: 10 MG, UNK
  7. CLONAZEPAM [Concomitant]
     Dosage: 0.5 MG, UNK
  8. MELOXICAM [Concomitant]
     Dosage: 7.5 MG, UNK
  9. HUMIRA [Concomitant]
     Dosage: UNK

REACTIONS (1)
  - Therapeutic response decreased [Unknown]
